FAERS Safety Report 7375298-0 (Version None)
Quarter: 2011Q1

REPORT INFORMATION
  Report Type: 
  Country: None (occurrence: None)
  Receive Date: 20110325
  Receipt Date: 20110314
  Transmission Date: 20110831
  Serious: Yes (Hospitalization, Other)
  Sender: FDA-Public Use
  Company Number: FR-ACTELION-A-CH2011-45479

PATIENT
  Sex: Male
  Weight: 61 kg

DRUGS (3)
  1. TRACLEER [Suspect]
     Dosage: 62.5 MG, BID
     Route: 048
     Dates: start: 20091116, end: 20100124
  2. ADALAT [Concomitant]
  3. TRACLEER [Suspect]
     Indication: SKIN ULCER
     Dosage: 125 MG, BID
     Route: 048
     Dates: start: 20100125, end: 20100201

REACTIONS (3)
  - GASTRIC CANCER [None]
  - GASTRIC OPERATION [None]
  - CHEMOTHERAPY [None]
